FAERS Safety Report 19074939 (Version 1)
Quarter: 2021Q1

REPORT INFORMATION
  Report Type: Spontaneous
  Country: US (occurrence: US)
  Receive Date: 20210330
  Receipt Date: 20210330
  Transmission Date: 20210420
  Serious: Yes (Other)
  Sender: FDA-Public Use
  Company Number: US-009507513-2103USA006594

PATIENT
  Sex: Female

DRUGS (9)
  1. NOVOLOG [Concomitant]
     Active Substance: INSULIN ASPART
     Indication: DIABETES MELLITUS
     Dosage: AS NEEDED PER SLIDING SCALE
  2. BASAGLAR [Concomitant]
     Active Substance: INSULIN GLARGINE
     Indication: DIABETES MELLITUS
     Dosage: 8 UNITS DAILY IN THE MORNING
  3. ASPIRIN. [Concomitant]
     Active Substance: ASPIRIN
     Indication: BLOOD CHOLESTEROL INCREASED
     Dosage: ONE BABY ASPIRIN DAILY
  4. PRINIVIL [Suspect]
     Active Substance: LISINOPRIL
     Indication: GASTROOESOPHAGEAL REFLUX DISEASE
     Dosage: LIQUID, 10 ML, ONCE DAILY
     Dates: start: 2018
  5. COVID?19 VACCINE NOS. [Suspect]
     Active Substance: COVID-19 VACCINE NOS
     Indication: PROPHYLAXIS
     Dosage: FIRST DOSE, RIGHT ARM
     Dates: start: 20210312
  6. ATORVASTATIN [Concomitant]
     Active Substance: ATORVASTATIN
     Indication: BLOOD CHOLESTEROL
     Dosage: 40 MILLIGRAM, DAILY
  7. METOPROLOL. [Concomitant]
     Active Substance: METOPROLOL
     Dosage: 50 MILLIGRAM, ONCE DAILY
  8. VALPROIC ACID. [Concomitant]
     Active Substance: VALPROIC ACID
     Indication: SEIZURE
     Dosage: LIQUID, 15 ML, THREE TIMES PER DAY
     Dates: start: 2017
  9. PHENYTOIN. [Concomitant]
     Active Substance: PHENYTOIN
     Indication: SEIZURE
     Dosage: LIQUID, 4 ML, THREE TIMES PER DAY
     Dates: start: 2017

REACTIONS (5)
  - Product use in unapproved indication [Unknown]
  - Speech disorder [Unknown]
  - Injection site erythema [Unknown]
  - Seizure [Unknown]
  - Gait inability [Unknown]

NARRATIVE: CASE EVENT DATE: 20210318
